FAERS Safety Report 6704004-5 (Version None)
Quarter: 2010Q2

REPORT INFORMATION
  Report Type: 
  Country: None (occurrence: None)
  Receive Date: 20100430
  Receipt Date: 20100415
  Transmission Date: 20101027
  Serious: Yes (Other)
  Sender: FDA-Public Use
  Company Number: US-ROCHE-700240

PATIENT
  Sex: Female
  Weight: 59 kg

DRUGS (1)
  1. CAPECITABINE [Suspect]
     Indication: BREAST CANCER
     Dosage: FREQUENCY: FOR 21 DAYS
     Route: 048
     Dates: start: 20091101, end: 20100322

REACTIONS (1)
  - MALIGNANT NEOPLASM PROGRESSION [None]
